FAERS Safety Report 4600411-5 (Version None)
Quarter: 2005Q1

REPORT INFORMATION
  Report Type: 
  Country: None (occurrence: None)
  Receive Date: 20050304
  Receipt Date: 20050219
  Transmission Date: 20050727
  Serious: No
  Sender: FDA-Public Use
  Company Number: 26251

PATIENT
  Sex: Male

DRUGS (1)
  1. ALDARA [Suspect]
     Indication: ACTINIC KERATOSIS
     Dosage: 3 IN 1 WEEK (S), TOPICAL
     Route: 061
     Dates: start: 20040101, end: 20040101

REACTIONS (3)
  - MALIGNANT NEOPLASM PROGRESSION [None]
  - METASTASES TO NERVOUS SYSTEM [None]
  - SQUAMOUS CELL CARCINOMA [None]
